FAERS Safety Report 5052600-6 (Version None)
Quarter: 2006Q3

REPORT INFORMATION
  Report Type: 
  Country: None (occurrence: None)
  Receive Date: 20060717
  Receipt Date: 20060705
  Transmission Date: 20061208
  Serious: Yes (Other)
  Sender: FDA-Public Use
  Company Number: FR-GLAXOSMITHKLINE-B0430396A

PATIENT
  Age: 65 Year
  Sex: Female

DRUGS (5)
  1. SERETIDE DISKUS [Suspect]
     Dosage: 1PUFF TWICE PER DAY
     Route: 055
     Dates: start: 20050701, end: 20051201
  2. RITONAVIR [Suspect]
     Indication: HIV INFECTION
     Dosage: 100MG TWICE PER DAY
     Route: 048
     Dates: start: 20031001
  3. TELZIR [Concomitant]
     Indication: HIV INFECTION
     Dosage: 1400MG PER DAY
     Route: 048
     Dates: start: 20050701
  4. EPIVIR [Concomitant]
     Indication: HIV INFECTION
     Dosage: 300MG PER DAY
     Route: 048
     Dates: start: 20050701
  5. VIDEX [Concomitant]
     Indication: HIV INFECTION
     Dosage: 200MG PER DAY
     Route: 048
     Dates: start: 20050701

REACTIONS (9)
  - ACNE [None]
  - AMYOTROPHY [None]
  - BLOOD CORTISOL DECREASED [None]
  - CENTRAL OBESITY [None]
  - CUSHING'S SYNDROME [None]
  - CUSHINGOID [None]
  - DRUG INTERACTION [None]
  - OSTEOPOROSIS [None]
  - SKIN STRIAE [None]
